FAERS Safety Report 19947226 (Version 4)
Quarter: 2021Q4

REPORT INFORMATION
  Report Type: Spontaneous
  Country: BR (occurrence: BR)
  Receive Date: 20211012
  Receipt Date: 20211229
  Transmission Date: 20220303
  Serious: Yes (Other)
  Sender: FDA-Public Use
  Company Number: BR-AMGEN-BRASP2021154630

PATIENT
  Age: 80 Year
  Sex: Female
  Weight: 53 kg

DRUGS (1)
  1. PROLIA [Suspect]
     Active Substance: DENOSUMAB
     Indication: Osteoporosis postmenopausal
     Dosage: 60 MILLIGRAM, Q6MO
     Route: 058
     Dates: start: 202010, end: 202104

REACTIONS (9)
  - Stress fracture [Unknown]
  - Chondropathy [Unknown]
  - Bursal fluid accumulation [Unknown]
  - Bursa disorder [Unknown]
  - Osteoarthritis [Unknown]
  - Arthralgia [Unknown]
  - Pruritus [Recovered/Resolved]
  - Alopecia [Recovered/Resolved]
  - Rash [Recovered/Resolved]

NARRATIVE: CASE EVENT DATE: 20210801
